FAERS Safety Report 4377178-1 (Version None)
Quarter: 2004Q2

REPORT INFORMATION
  Report Type: 
  Country: None (occurrence: None)
  Receive Date: 20040614
  Receipt Date: 20040614
  Transmission Date: 20050107
  Serious: No
  Sender: FDA-Public Use
  Company Number: None

PATIENT
  Age: 54 Year
  Sex: Female
  Weight: 105 kg

DRUGS (11)
  1. LINEZOLID 600 MG [Suspect]
     Indication: GLYCOPEPTIDE ANTIBIOTIC RESISTANT ENTEROCOCCAL INFECTION
     Dosage: 600 MG Q12 IV
     Route: 042
     Dates: start: 20040426, end: 20040503
  2. PHOSLO [Concomitant]
  3. DIFLUCAN [Concomitant]
  4. PROTONIX [Concomitant]
  5. IMMUNE GLOBULIN INTRAVENOUS (HUMAN) [Concomitant]
  6. CEFEPIME [Concomitant]
  7. SOLU-MEDROL [Concomitant]
  8. EPOGEN [Concomitant]
  9. ZAROXOLYN [Concomitant]
  10. LASIX [Concomitant]
  11. METOPROLOL TARTRATE [Concomitant]

REACTIONS (1)
  - PLATELET COUNT DECREASED [None]
